FAERS Safety Report 8535186-0 (Version None)
Quarter: 2012Q3

REPORT INFORMATION
  Report Type: 
  Country: None (occurrence: None)
  Receive Date: 20120724
  Receipt Date: 20120718
  Transmission Date: 20120928
  Serious: Yes (Other)
  Sender: FDA-Public Use
  Company Number: US-RB-042562-12

PATIENT
  Age: 34 Year
  Sex: Female

DRUGS (3)
  1. SUBOXONE [Suspect]
     Indication: DRUG DEPENDENCE
     Route: 060
     Dates: end: 20120101
  2. SUBOXONE [Suspect]
     Route: 050
     Dates: start: 20110801, end: 20120506
  3. SUBOXONE [Suspect]
     Dosage: 1-2 MG DAILY
     Route: 060
     Dates: start: 20120101

REACTIONS (6)
  - CARDIAC FAILURE CONGESTIVE [None]
  - EXPOSURE VIA SEMEN [None]
  - OEDEMA PERIPHERAL [None]
  - MATERNAL EXPOSURE DURING PREGNANCY [None]
  - WRONG TECHNIQUE IN DRUG USAGE PROCESS [None]
  - HAEMORRHAGE [None]
